FAERS Safety Report 15977585 (Version 2)
Quarter: 2019Q1

REPORT INFORMATION
  Report Type: Spontaneous
  Country: FR (occurrence: FR)
  Receive Date: 20190218
  Receipt Date: 20190326
  Transmission Date: 20190418
  Serious: Yes (Hospitalization)
  Sender: FDA-Public Use
  Company Number: PHHY2019FR035068

PATIENT
  Age: 81 Year
  Sex: Male
  Weight: 68 kg

DRUGS (14)
  1. EUPANTOL [Suspect]
     Active Substance: PANTOPRAZOLE SODIUM
     Indication: GASTROINTESTINAL DISORDER
     Dosage: 40 MG, QD
     Route: 048
     Dates: end: 20181208
  2. MACROGOL [Suspect]
     Active Substance: POLYETHYLENE GLYCOLS
     Indication: CONSTIPATION
     Dosage: 1 OT, UNK
     Route: 048
  3. GELOX [Suspect]
     Active Substance: ALUMINUM HYDROXIDE\MAGNESIUM HYDROXIDE\MONTMORILLONITE
     Indication: GASTROOESOPHAGEAL REFLUX DISEASE
     Dosage: UNK
     Route: 048
  4. HYDROCORTISONE. [Suspect]
     Active Substance: HYDROCORTISONE
     Indication: ADRENOCORTICAL STEROID THERAPY
     Dosage: 20 MG, QD
     Route: 048
     Dates: start: 20181205
  5. BROMAZEPAM [Suspect]
     Active Substance: BROMAZEPAM
     Indication: SLEEP DISORDER
     Dosage: 2 DF, QD
     Route: 048
     Dates: end: 20181208
  6. FUROSEMIDE. [Suspect]
     Active Substance: FUROSEMIDE
     Indication: HYPERTENSION
     Dosage: 20 MG, QD
     Route: 048
     Dates: end: 20181208
  7. TARDYFERON [Suspect]
     Active Substance: FERROUS SULFATE
     Route: 048
  8. METEOXANE [Suspect]
     Active Substance: AMOBARBITAL\BELLADONNA LEAF\DIMETHICONE\ERGOTAMINE TARTRATE
     Indication: FUNCTIONAL GASTROINTESTINAL DISORDER
     Dosage: 4 DF, QD
     Route: 048
     Dates: end: 20181208
  9. OXYNORM [Suspect]
     Active Substance: OXYCODONE HYDROCHLORIDE
     Indication: BONE PAIN
     Dosage: 5 MG, QD
     Route: 048
     Dates: start: 20181205, end: 20181208
  10. TRIMEBUTINE [Concomitant]
     Active Substance: TRIMEBUTINE
     Indication: FUNCTIONAL GASTROINTESTINAL DISORDER
     Dosage: 800 MG, QD
     Route: 048
  11. TARDYFERON [Suspect]
     Active Substance: FERROUS SULFATE
     Indication: IRON DEFICIENCY ANAEMIA
     Dosage: UNK
     Route: 048
  12. ENANTONE LP [Suspect]
     Active Substance: LEUPROLIDE ACETATE
     Indication: PROSTATE CANCER
     Dosage: 1 DF, Q3MO
     Route: 030
  13. GELOX [Suspect]
     Active Substance: ALUMINUM HYDROXIDE\MAGNESIUM HYDROXIDE\MONTMORILLONITE
     Route: 048
  14. METOPROLOL. [Concomitant]
     Active Substance: METOPROLOL
     Indication: HYPERTENSION
     Dosage: 50 MG, QD
     Route: 048

REACTIONS (3)
  - Fall [Recovered/Resolved]
  - Confusional state [Recovered/Resolved]
  - Inappropriate antidiuretic hormone secretion [Recovering/Resolving]

NARRATIVE: CASE EVENT DATE: 201812
